FAERS Safety Report 4625960-5 (Version None)
Quarter: 2005Q1

REPORT INFORMATION
  Report Type: 
  Country: None (occurrence: None)
  Receive Date: 20050330
  Receipt Date: 20050323
  Transmission Date: 20050727
  Serious: Yes (Other)
  Sender: FDA-Public Use
  Company Number: 2005048925

PATIENT
  Age: 70 Year
  Sex: Male
  Weight: 86.1834 kg

DRUGS (6)
  1. LIPITOR [Suspect]
     Indication: BLOOD CHOLESTEROL INCREASED
     Dosage: 80 MG (80 MG , 1 IN 1 D), ORAL
     Route: 048
     Dates: start: 20030101
  2. ATENOLOL (ANTENOLOL) [Concomitant]
  3. ANTITHYROID PREPARATIONS (ANTITHYROID PREPARATIONS) [Concomitant]
  4. ANTIHYPERTENSIVES            (ANTIHYPERTENSIVES) [Concomitant]
  5. DIURETICS (DIURETICS) [Concomitant]
  6. DIAZEPAM [Concomitant]

REACTIONS (2)
  - BENIGN PROSTATIC HYPERPLASIA [None]
  - BLOOD URINE PRESENT [None]
